FAERS Safety Report 25016565 (Version 3)
Quarter: 2025Q1

REPORT INFORMATION
  Report Type: Other
  Country: US (occurrence: US)
  Receive Date: 20250227
  Receipt Date: 20250324
  Transmission Date: 20250408
  Serious: Yes (Hospitalization)
  Sender: TRAVERE THERAPEUTICS
  Company Number: US-TRAVERE-2025TVT00248

PATIENT
  Sex: Male

DRUGS (1)
  1. FILSPARI [Suspect]
     Active Substance: SPARSENTAN
     Indication: Product used for unknown indication
     Route: 048
     Dates: start: 20241228, end: 20250102

REACTIONS (4)
  - Renal disorder [Unknown]
  - Primary biliary cholangitis [Unknown]
  - Aspiration pleural cavity [Unknown]
  - Hypotension [Unknown]
